FAERS Safety Report 10676545 (Version 1)
Quarter: 2014Q4

REPORT INFORMATION
  Report Type: Spontaneous
  Country: US (occurrence: None)
  Receive Date: 20141223
  Receipt Date: 20141223
  Transmission Date: 20150529
  Serious: Yes (Other)
  Sender: FDA-Public Use
  Company Number: None

PATIENT
  Age: 79 Year
  Sex: Female
  Weight: 50.8 kg

DRUGS (7)
  1. ALLEGRA-D [Concomitant]
     Active Substance: FEXOFENADINE\PSEUDOEPHEDRINE
  2. BENICAR [Suspect]
     Active Substance: OLMESARTAN MEDOXOMIL
     Indication: BLOOD PRESSURE ABNORMAL
     Dosage: 20MG TABLET?TAKE 1/2 TABLET BY MOUTH EVERY DAY?ONCE DAILY ANY TIME?BY MOUTH?SAMPLES DR GIVE ME
     Route: 048
     Dates: start: 201302, end: 201312
  3. CITRACAL SLOW RELEASE [Concomitant]
  4. VITAMIN D [Concomitant]
     Active Substance: CHOLECALCIFEROL
  5. RANITIDE [Concomitant]
  6. PREDNISONE. [Concomitant]
     Active Substance: PREDNISONE
  7. MULTIPLE VITAMIN [Concomitant]
     Active Substance: VITAMINS

REACTIONS (7)
  - Vomiting [None]
  - Peripheral swelling [None]
  - Diarrhoea [None]
  - Flatulence [None]
  - Joint swelling [None]
  - Herpes zoster [None]
  - Lip swelling [None]

NARRATIVE: CASE EVENT DATE: 201307
